FAERS Safety Report 7932063-0 (Version None)
Quarter: 2011Q4

REPORT INFORMATION
  Report Type: 
  Country: None (occurrence: None)
  Receive Date: 20111121
  Receipt Date: 20110928
  Transmission Date: 20120403
  Serious: No
  Sender: FDA-Public Use
  Company Number: US-BAYER-2011-094227

PATIENT
  Age: 78 Year
  Sex: Female
  Weight: 75 kg

DRUGS (3)
  1. GLUCOPHAGE [Concomitant]
     Dosage: UNK
  2. COUMADIN [Concomitant]
     Dosage: UNK
  3. ALEVE (CAPLET) [Suspect]
     Dosage: 1 DF, ONCE
     Dates: start: 20110927, end: 20110927

REACTIONS (1)
  - NAUSEA [None]
